FAERS Safety Report 20899308 (Version 2)
Quarter: 2022Q2

REPORT INFORMATION
  Report Type: Spontaneous
  Country: NZ (occurrence: NZ)
  Receive Date: 20220601
  Receipt Date: 20220625
  Transmission Date: 20220721
  Serious: Yes (Hospitalization, Other)
  Sender: FDA-Public Use
  Company Number: NZ-JNJFOC-20220557385

PATIENT

DRUGS (1)
  1. REMICADE [Suspect]
     Active Substance: INFLIXIMAB
     Indication: Crohn^s disease

REACTIONS (5)
  - Crohn^s disease [Unknown]
  - Intestinal stenosis [Unknown]
  - Small intestinal obstruction [Unknown]
  - Therapeutic response decreased [Unknown]
  - Drug level above therapeutic [Unknown]
